FAERS Safety Report 23557495 (Version 1)
Quarter: 2024Q1

REPORT INFORMATION
  Report Type: Spontaneous
  Country: GB (occurrence: GB)
  Receive Date: 20240223
  Receipt Date: 20240223
  Transmission Date: 20240410
  Serious: Yes (Other)
  Sender: FDA-Public Use
  Company Number: GB-MHRA-EMIS-3212-a5480d33-dc30-45f9-8754-a4fb03c1d326

PATIENT
  Age: 50 Year
  Sex: Female
  Weight: 64 kg

DRUGS (3)
  1. SERTRALINE [Suspect]
     Active Substance: SERTRALINE HYDROCHLORIDE
     Indication: Product used for unknown indication
     Dosage: UNK, TAKE HALF A TABLET 7 DAYS IN MORNING THEN ONE DAILY IN MORNING
     Route: 065
     Dates: start: 20240116, end: 20240207
  2. Luforbec [Concomitant]
     Indication: Product used for unknown indication
     Dosage: UNK UNK, TWO TIMES A DAY (TWO PUFFS TO BE INHALED TWICE A DAY VIA AEROCHAMBER.)
     Dates: start: 20231129
  3. SERTRALINE [Concomitant]
     Active Substance: SERTRALINE HYDROCHLORIDE
     Indication: Product used for unknown indication
     Dosage: UNK, TAKE HALF A TABLET 7 DAYS IN MORNING THEN ONE DAILY IN MORNING
     Route: 065
     Dates: start: 20240116, end: 20240207

REACTIONS (1)
  - Urinary retention [Recovered/Resolved]
